FAERS Safety Report 15543581 (Version 1)
Quarter: 2018Q4

REPORT INFORMATION
  Report Type: Spontaneous
  Country: US (occurrence: US)
  Receive Date: 20181023
  Receipt Date: 20181023
  Transmission Date: 20190205
  Serious: Yes (Other)
  Sender: FDA-Public Use
  Company Number: US-BAUSCH-BL-2018-004264

PATIENT
  Sex: Female
  Weight: 63.56 kg

DRUGS (4)
  1. WELLBUTRIN XL [Suspect]
     Active Substance: BUPROPION HYDROCHLORIDE
     Indication: NARCOLEPSY
     Route: 048
     Dates: start: 1998
  2. BUPROPION. [Suspect]
     Active Substance: BUPROPION
     Indication: NARCOLEPSY
     Dosage: IMMEDIATE RELEASE;DISCONTINUED IN 2013 OR 2014.
     Route: 065
  3. KLONOPIN [Concomitant]
     Active Substance: CLONAZEPAM
     Indication: PRODUCT USED FOR UNKNOWN INDICATION
  4. WELLBUTRIN XL [Suspect]
     Active Substance: BUPROPION HYDROCHLORIDE
     Indication: DEPRESSION

REACTIONS (1)
  - Seizure [Recovered/Resolved]
